FAERS Safety Report 20412572 (Version 2)
Quarter: 2023Q2

REPORT INFORMATION
  Report Type: Report from Study
  Country: CA (occurrence: CA)
  Receive Date: 20220201
  Receipt Date: 20230404
  Transmission Date: 20230722
  Serious: Yes (Hospitalization, Other)
  Sender: FDA-Public Use
  Company Number: CA-HLS-202107095

PATIENT
  Age: 24 Year
  Sex: Male

DRUGS (17)
  1. CLOZARIL [Suspect]
     Active Substance: CLOZAPINE
     Indication: Product used for unknown indication
     Dosage: START DATE: 09-DEC-2021
     Route: 048
  2. CLOZARIL [Suspect]
     Active Substance: CLOZAPINE
     Indication: Product used for unknown indication
     Dosage: START DATE: 09-DEC-2021
     Route: 048
     Dates: end: 20220126
  3. CLOZARIL [Suspect]
     Active Substance: CLOZAPINE
     Indication: Product used for unknown indication
     Dosage: START DATE: 09-DEC-2021?RESTARTED ON 08-DEC-2021 , 300 MG EVERY MORNING +450MG AT BEDTIME
     Route: 048
  4. CLOZARIL [Suspect]
     Active Substance: CLOZAPINE
     Indication: Product used for unknown indication
     Dosage: START DATE: 12-NOV-2020
     Route: 048
     Dates: end: 20210728
  5. CHLORAL HYDRATE [Concomitant]
     Active Substance: CHLORAL HYDRATE
     Indication: Agitation
     Route: 048
  6. CHLORAL HYDRATE [Concomitant]
     Active Substance: CHLORAL HYDRATE
     Indication: Insomnia
     Route: 048
  7. BENZTROPINE [Concomitant]
     Active Substance: BENZTROPINE
     Indication: Extrapyramidal disorder
     Dosage: 2 MG ORAL/INTRAMUSCULAR AS NEEDED
     Route: 065
  8. ARIPIPRAZOLE [Concomitant]
     Active Substance: ARIPIPRAZOLE
     Indication: Product used for unknown indication
     Dosage: 10 MG EVERY MORNING +10MG AT BEDTIME
     Route: 048
     Dates: start: 20211119
  9. CLONAZEPAM [Concomitant]
     Active Substance: CLONAZEPAM
     Indication: Product used for unknown indication
     Dosage: TWICE DAILY
     Route: 048
  10. ZOPICLONE [Concomitant]
     Active Substance: ZOPICLONE
     Indication: Insomnia
     Dosage: AT BEDTIME AS NEEDED
     Route: 048
  11. Sennoside A + B [Concomitant]
     Indication: Product used for unknown indication
     Dosage: AT BEDTIME
     Route: 048
  12. POLYETHYLENE GLYCOL [Concomitant]
     Active Substance: POLYETHYLENE GLYCOL
     Indication: Product used for unknown indication
     Dosage: EVERY MORNING
     Route: 048
  13. LORAZEPAM [Concomitant]
     Active Substance: LORAZEPAM
     Indication: Product used for unknown indication
     Dosage: AS NEEDED MAX 8 MG PER 24 HOURS
     Route: 030
  14. OMEGA 3 [Concomitant]
     Active Substance: CAPSAICIN
     Indication: Product used for unknown indication
     Dosage: TWICE DAILY
     Route: 048
  15. Benzyl peroxide [Concomitant]
     Indication: Product used for unknown indication
     Route: 065
  16. METOPROLOL [Concomitant]
     Active Substance: METOPROLOL
     Indication: Tachycardia
     Dosage: TWICE DAILY
     Route: 048
  17. LOXAPINE [Concomitant]
     Active Substance: LOXAPINE
     Indication: Agitation
     Dosage: EVERY 1 HOUR MAX 8 MG PER 24 HOURS
     Route: 030

REACTIONS (22)
  - Hepatic enzyme increased [Unknown]
  - Pleural effusion [Unknown]
  - Neutropenia [Recovered/Resolved]
  - Aggression [Unknown]
  - Neutropenia [Unknown]
  - Empyema [Unknown]
  - Fall [Unknown]
  - Pyrexia [Unknown]
  - Fungal infection [Unknown]
  - Hepatitis C virus test positive [Recovered/Resolved]
  - Lymphocyte count decreased [Recovered/Resolved]
  - Substance abuse [Unknown]
  - Drug ineffective [Unknown]
  - Tachycardia [Not Recovered/Not Resolved]
  - Psychotic disorder [Unknown]
  - Heart rate increased [Not Recovered/Not Resolved]
  - Schizophrenia [Unknown]
  - Blood sodium decreased [Unknown]
  - Sexually inappropriate behaviour [Unknown]
  - Delusion [Unknown]
  - Haematemesis [Unknown]
  - Leukopenia [Not Recovered/Not Resolved]

NARRATIVE: CASE EVENT DATE: 20190905
